FAERS Safety Report 8404910-X (Version None)
Quarter: 2012Q2

REPORT INFORMATION
  Report Type: 
  Country: None (occurrence: None)
  Receive Date: 20120601
  Receipt Date: 20120301
  Transmission Date: 20120825
  Serious: No
  Sender: FDA-Public Use
  Company Number: US-ASTRAZENECA-2009UW03404

PATIENT
  Age: 87 Year
  Sex: Female

DRUGS (3)
  1. ATACAND HCT [Suspect]
     Route: 048
  2. CRESTOR [Suspect]
     Route: 048
  3. TOPROL-XL [Suspect]
     Route: 048

REACTIONS (4)
  - GASTROINTESTINAL MUCOSAL DISORDER [None]
  - OSTEOPOROSIS [None]
  - MALAISE [None]
  - DRUG INEFFECTIVE [None]
